FAERS Safety Report 13968923 (Version 1)
Quarter: 2017Q3

REPORT INFORMATION
  Report Type: Spontaneous
  Country: PT (occurrence: PT)
  Receive Date: 20170914
  Receipt Date: 20170914
  Transmission Date: 20171128
  Serious: Yes (Other)
  Sender: FDA-Public Use
  Company Number: PT-REGENERON PHARMACEUTICALS, INC.-2017-21961

PATIENT

DRUGS (1)
  1. EYLEA [Suspect]
     Active Substance: AFLIBERCEPT
     Indication: DIABETIC RETINAL OEDEMA
     Dosage: 1 DF, Q1MON (THE PATIENT ALREADY RECEIVED 3 INJECTIONS)
     Route: 031

REACTIONS (3)
  - Maculopathy [Unknown]
  - Diabetic retinal oedema [Unknown]
  - Drug ineffective [Unknown]
